FAERS Safety Report 6686802-X (Version None)
Quarter: 2010Q2

REPORT INFORMATION
  Report Type: 
  Country: None (occurrence: None)
  Receive Date: 20100419
  Receipt Date: 20100409
  Transmission Date: 20101027
  Serious: Yes (Hospitalization)
  Sender: FDA-Public Use
  Company Number: GXKR2009DK10634

PATIENT
  Sex: Female
  Weight: 70 kg

DRUGS (1)
  1. SERTRALINE HCL [Suspect]
     Indication: DEPRESSED MOOD
     Dosage: UP TO 100 MG/DAY
     Route: 048
     Dates: start: 20060815, end: 20061228

REACTIONS (25)
  - AGGRESSION [None]
  - ALOPECIA [None]
  - ARRHYTHMIA [None]
  - BLOOD PRESSURE INCREASED [None]
  - BRAIN INJURY [None]
  - CONSTIPATION [None]
  - DRUG TOXICITY [None]
  - DRY MOUTH [None]
  - FALL [None]
  - HYPERHIDROSIS [None]
  - HYPERPARATHYROIDISM [None]
  - IMPULSE-CONTROL DISORDER [None]
  - MANIA [None]
  - NEUROLOGICAL SYMPTOM [None]
  - PARESIS [None]
  - PARKINSONISM [None]
  - PERIODONTAL DISEASE [None]
  - PERSONALITY CHANGE [None]
  - PYREXIA [None]
  - QUALITY OF LIFE DECREASED [None]
  - RENAL IMPAIRMENT [None]
  - SEROTONIN SYNDROME [None]
  - TREMOR [None]
  - VIITH NERVE PARALYSIS [None]
  - WEIGHT INCREASED [None]
